APPROVED DRUG PRODUCT: GALLIUM GA 68 GOZETOTIDE
Active Ingredient: GALLIUM GA-68 GOZETOTIDE
Strength: 0.5-5mCi/mL
Dosage Form/Route: SOLUTION;INTRAVENOUS
Application: N212642 | Product #001
Applicant: UNIV CALIFORNIA LOS ANGELES
Approved: Dec 1, 2020 | RLD: Yes | RS: Yes | Type: RX